FAERS Safety Report 8866826 (Version 1)
Quarter: 2012Q4

REPORT INFORMATION
  Report Type: 
  Country: US (occurrence: US)
  Receive Date: 20121025
  Receipt Date: 20121025
  Transmission Date: 20130627
  Serious: No
  Sender: FDA-Public Use
  Company Number: US-AMGEN-USASP2012013504

PATIENT
  Age: 11 Year
  Sex: Male

DRUGS (2)
  1. ENBREL [Suspect]
     Indication: JUVENILE ARTHRITIS
     Dosage: 25 mg, qwk
     Dates: start: 20111201
  2. METHOTREXATE [Concomitant]
     Dosage: UNK
     Dates: start: 20110601

REACTIONS (2)
  - Joint effusion [Not Recovered/Not Resolved]
  - Oedema peripheral [Recovered/Resolved]
